FAERS Safety Report 19792779 (Version 4)
Quarter: 2023Q2

REPORT INFORMATION
  Report Type: Other
  Country: EG (occurrence: None)
  Receive Date: 20210906
  Receipt Date: 20230522
  Transmission Date: 20230722
  Serious: Yes (Other)
  Sender: FDA-Public Use
  Company Number: EG-ROCHE-2655607

PATIENT
  Age: 41 Year
  Sex: Male
  Weight: 60 kg

DRUGS (1)
  1. OCREVUS [Suspect]
     Active Substance: OCRELIZUMAB
     Indication: Multiple sclerosis
     Route: 042
     Dates: start: 20190901, end: 20221002

REACTIONS (8)
  - Dysstasia [Unknown]
  - Gait inability [Unknown]
  - Loss of consciousness [Unknown]
  - Drug ineffective [Unknown]
  - Arthropathy [Not Recovered/Not Resolved]
  - Amnesia [Not Recovered/Not Resolved]
  - Fall [Unknown]
  - Osteoporosis [Unknown]

NARRATIVE: CASE EVENT DATE: 20210701
